FAERS Safety Report 13058419 (Version 3)
Quarter: 2017Q1

REPORT INFORMATION
  Report Type: Spontaneous
  Country: US (occurrence: US)
  Receive Date: 20161223
  Receipt Date: 20170104
  Transmission Date: 20170428
  Serious: No
  Sender: FDA-Public Use
  Company Number: US-PFIZER INC-2016588130

PATIENT
  Age: 9 Year

DRUGS (1)
  1. CHILDRENS DIMETAPP COLD AND FEVER (IBUPROFEN\PSEUDOEPHEDRINE HYDROCHLORIDE) [Suspect]
     Active Substance: IBUPROFEN\PSEUDOEPHEDRINE HYDROCHLORIDE
     Dosage: UNK

REACTIONS (1)
  - No adverse event [Unknown]
